FAERS Safety Report 17611967 (Version 1)
Quarter: 2020Q2

REPORT INFORMATION
  Report Type: Spontaneous
  Country: US (occurrence: US)
  Receive Date: 20200401
  Receipt Date: 20200401
  Transmission Date: 20200713
  Serious: Yes (Life-Threatening, Hospitalization)
  Sender: FDA-Public Use
  Company Number: US-MYLANLABS-2020M1033798

PATIENT
  Age: 83 Year
  Sex: Female

DRUGS (1)
  1. HEPARIN [Suspect]
     Active Substance: HEPARIN SODIUM
     Indication: PULMONARY EMBOLISM
     Dosage: UNK

REACTIONS (6)
  - Obstructive airways disorder [Recovered/Resolved]
  - Stridor [Recovered/Resolved]
  - Haematoma [Recovered/Resolved]
  - Drooling [Recovered/Resolved]
  - Dysphonia [Recovered/Resolved]
  - Salivary gland mass [Recovered/Resolved]
